FAERS Safety Report 18620875 (Version 3)
Quarter: 2021Q1

REPORT INFORMATION
  Report Type: Report from Study
  Country: DE (occurrence: DE)
  Receive Date: 20201216
  Receipt Date: 20210208
  Transmission Date: 20210419
  Serious: Yes (Hospitalization)
  Sender: FDA-Public Use
  Company Number: DE-CELLTRION INC.-2020DE033608

PATIENT

DRUGS (6)
  1. ZOLPIDEM [Concomitant]
     Active Substance: ZOLPIDEM TARTRATE
     Dosage: UNK
  2. PANTOPRAZOL [PANTOPRAZOLE] [Concomitant]
     Active Substance: PANTOPRAZOLE
     Dosage: UNK
  3. TRUXIMA [Suspect]
     Active Substance: RITUXIMAB-ABBS
     Indication: NON-HODGKIN^S LYMPHOMA
     Dosage: 700 MG, UNK [STRENGTH 700MG]
     Route: 042
     Dates: start: 20190730, end: 20191121
  4. CARVEDILOL. [Concomitant]
     Active Substance: CARVEDILOL
     Dosage: UNK
  5. ETORICOXIB. [Concomitant]
     Active Substance: ETORICOXIB
     Dosage: UNK
  6. METOCLOPRAMID [METOCLOPRAMIDE] [Concomitant]
     Active Substance: METOCLOPRAMIDE
     Dosage: UNK

REACTIONS (2)
  - Underdose [Unknown]
  - Cranial nerve paralysis [Recovered/Resolved]

NARRATIVE: CASE EVENT DATE: 20190916
